FAERS Safety Report 12107584 (Version 1)
Quarter: 2016Q1

REPORT INFORMATION
  Report Type: Spontaneous
  Country: US (occurrence: US)
  Receive Date: 20160224
  Receipt Date: 20160224
  Transmission Date: 20160526
  Serious: No
  Sender: FDA-Public Use
  Company Number: US-JNJFOC-20160117007

PATIENT
  Age: 62 Year
  Sex: Female
  Weight: 58.97 kg

DRUGS (2)
  1. INVOKANA [Suspect]
     Active Substance: CANAGLIFLOZIN
     Indication: TYPE 2 DIABETES MELLITUS
     Route: 048
     Dates: start: 20160112
  2. BABY ASPIRIN [Concomitant]
     Active Substance: ASPIRIN
     Indication: PANCREATIC DISORDER
     Route: 048
     Dates: start: 2010

REACTIONS (2)
  - Headache [Recovered/Resolved]
  - Inappropriate schedule of drug administration [Unknown]

NARRATIVE: CASE EVENT DATE: 20160113
